FAERS Safety Report 20136837 (Version 1)
Quarter: 2021Q4

REPORT INFORMATION
  Report Type: Spontaneous
  Country: US (occurrence: US)
  Receive Date: 20211201
  Receipt Date: 20211201
  Transmission Date: 20220303
  Serious: No
  Sender: FDA-Public Use
  Company Number: US-MYLANLABS-2021M1075199

PATIENT
  Age: 62 Year
  Sex: Female
  Weight: 133 kg

DRUGS (3)
  1. HALOPERIDOL DECANOATE [Suspect]
     Active Substance: HALOPERIDOL DECANOATE
     Indication: Psychotic disorder
     Dosage: INJECT 200MG EVERY FOUR WEEKS
     Route: 030
  2. HALOPERIDOL DECANOATE [Suspect]
     Active Substance: HALOPERIDOL DECANOATE
     Dosage: UNK
  3. ASPIRIN                            /00002701/ [Concomitant]
     Dosage: UNK UNK, QD

REACTIONS (2)
  - Urticaria [Unknown]
  - Neoplasm [Unknown]

NARRATIVE: CASE EVENT DATE: 20211008
